FAERS Safety Report 24247865 (Version 1)
Quarter: 2024Q3

REPORT INFORMATION
  Report Type: Spontaneous
  Country: AR (occurrence: AR)
  Receive Date: 20240826
  Receipt Date: 20240826
  Transmission Date: 20241016
  Serious: Yes (Other)
  Sender: ROCHE
  Company Number: AR-002147023-NVSC2024AR155660

PATIENT
  Age: 65 Year
  Sex: Female

DRUGS (4)
  1. XOLAIR [Suspect]
     Active Substance: OMALIZUMAB
     Indication: Urticaria chronic
     Dosage: 150 MG (EVERY 4 WEEKS) (2 TOGETHER)
     Route: 050
     Dates: start: 20240624
  2. XOLAIR [Suspect]
     Active Substance: OMALIZUMAB
     Indication: Angioedema
     Dosage: 150 MG (EVERY 4 WEEKS) (2 TOGETHER)
     Route: 050
     Dates: start: 20240624
  3. ALLEGRA [Concomitant]
     Active Substance: FEXOFENADINE HYDROCHLORIDE
     Indication: Product used for unknown indication
     Dosage: UNK, QD (AT MORNING)
     Route: 065
  4. RUPALER [Concomitant]
     Indication: Product used for unknown indication
     Dosage: UNK UNK, QD (AT NIGHT)
     Route: 065

REACTIONS (8)
  - Angioedema [Unknown]
  - Urticaria [Recovering/Resolving]
  - Memory impairment [Unknown]
  - Arthralgia [Unknown]
  - Nausea [Unknown]
  - Headache [Unknown]
  - Food allergy [Unknown]
  - Inappropriate schedule of product administration [Unknown]
